FAERS Safety Report 11258119 (Version 1)
Quarter: 2015Q2

REPORT INFORMATION
  Report Type: Spontaneous
  Country: US (occurrence: None)
  Receive Date: 20150622
  Receipt Date: 20150622
  Transmission Date: 20150821
  Serious: Yes (Hospitalization)
  Sender: FDA-Public Use
  Company Number: 2014-29177

PATIENT
  Age: 55 Year
  Sex: Male

DRUGS (3)
  1. MORPHINE [Concomitant]
     Active Substance: MORPHINE
  2. OXYCODONE [Concomitant]
     Active Substance: OXYCODONE
  3. BENTYL [Suspect]
     Active Substance: DICYCLOMINE HYDROCHLORIDE
     Indication: IRRITABLE BOWEL SYNDROME
     Route: 048
     Dates: start: 2012, end: 2012

REACTIONS (8)
  - Alopecia [None]
  - General physical health deterioration [None]
  - Delirium [None]
  - Dry mouth [None]
  - Intervertebral disc protrusion [None]
  - Bone disorder [None]
  - Abdominal pain [None]
  - Thinking abnormal [None]
